FAERS Safety Report 25758284 (Version 1)
Quarter: 2025Q3

REPORT INFORMATION
  Report Type: Spontaneous
  Country: CA (occurrence: CA)
  Receive Date: 20250904
  Receipt Date: 20250904
  Transmission Date: 20251021
  Serious: Yes (Life-Threatening, Hospitalization)
  Sender: TEVA
  Company Number: CA-TEVA-VS-3368422

PATIENT
  Age: 78 Year
  Sex: Male
  Weight: 81 kg

DRUGS (13)
  1. NAPROXEN [Suspect]
     Active Substance: NAPROXEN
     Indication: Procedural pain
     Route: 048
  2. DEXILANT [Concomitant]
     Active Substance: DEXLANSOPRAZOLE
     Indication: Product used for unknown indication
  3. CELEBREX [Concomitant]
     Active Substance: CELECOXIB
     Indication: Product used for unknown indication
  4. POLYETHYLENE GLYCOL 3350 [Concomitant]
     Active Substance: POLYETHYLENE GLYCOL 3350
     Indication: Product used for unknown indication
  5. INNOHEP [Suspect]
     Active Substance: TINZAPARIN SODIUM
     Indication: Thrombosis prophylaxis
     Dosage: UNIT DOSE 0.4ML PRE-FILLED SYRINGES. 20000 ANTI-XA IU/ML. PRESERVATIVE FREE, DOSE FORM: SOLUTION ...
     Route: 058
  6. TAMSULOSIN [Concomitant]
     Active Substance: TAMSULOSIN
     Indication: Product used for unknown indication
  7. HYDROMORPHONE [Concomitant]
     Active Substance: HYDROMORPHONE
     Indication: Product used for unknown indication
  8. TRAMADOL HYDROCHLORIDE [Concomitant]
     Active Substance: TRAMADOL HYDROCHLORIDE
     Indication: Product used for unknown indication
  9. JANUVIA [Concomitant]
     Active Substance: SITAGLIPTIN PHOSPHATE
     Indication: Product used for unknown indication
     Route: 048
  10. PREGABALIN [Concomitant]
     Active Substance: PREGABALIN
     Indication: Product used for unknown indication
  11. TYLENOL [Concomitant]
     Active Substance: ACETAMINOPHEN
     Indication: Product used for unknown indication
  12. METFORMIN [Concomitant]
     Active Substance: METFORMIN HYDROCHLORIDE
     Indication: Product used for unknown indication
  13. ROSUVASTATIN [Concomitant]
     Active Substance: ROSUVASTATIN
     Indication: Product used for unknown indication
     Route: 065

REACTIONS (16)
  - Haemarthrosis [Recovering/Resolving]
  - Syncope [Recovering/Resolving]
  - Hypotension [Recovering/Resolving]
  - Gastric ulcer [Recovering/Resolving]
  - Acute myocardial infarction [Recovering/Resolving]
  - Speech disorder [Recovering/Resolving]
  - Vomiting [Recovering/Resolving]
  - Balance disorder [Recovering/Resolving]
  - Headache [Recovering/Resolving]
  - Tachycardia [Recovering/Resolving]
  - Haemoglobin decreased [Recovering/Resolving]
  - Anaemia [Recovering/Resolving]
  - Dizziness [Recovering/Resolving]
  - Peripheral swelling [Recovering/Resolving]
  - Presyncope [Recovering/Resolving]
  - Acute kidney injury [Recovering/Resolving]
